FAERS Safety Report 11531323 (Version 1)
Quarter: 2015Q3

REPORT INFORMATION
  Report Type: Spontaneous
  Country: FR (occurrence: FR)
  Receive Date: 20150921
  Receipt Date: 20150921
  Transmission Date: 20151125
  Serious: Yes (Hospitalization, Other)
  Sender: FDA-Public Use
  Company Number: FR-JNJFOC-20150913615

PATIENT
  Age: 78 Year
  Sex: Male

DRUGS (5)
  1. XARELTO [Suspect]
     Active Substance: RIVAROXABAN
     Indication: EMBOLISM VENOUS
     Route: 048
     Dates: start: 201501
  2. XARELTO [Suspect]
     Active Substance: RIVAROXABAN
     Indication: PULMONARY EMBOLISM
     Route: 048
     Dates: start: 201501
  3. EUPANTOL [Concomitant]
     Active Substance: PANTOPRAZOLE SODIUM
     Route: 065
  4. PENICILLIN V [Suspect]
     Active Substance: PENICILLIN V
     Indication: PRODUCT USED FOR UNKNOWN INDICATION
     Route: 065
  5. SIMVASTATIN. [Concomitant]
     Active Substance: SIMVASTATIN
     Route: 065

REACTIONS (5)
  - Asthenia [Unknown]
  - Acute kidney injury [Unknown]
  - Haematuria [Unknown]
  - Urinary retention [Unknown]
  - Anterograde amnesia [Unknown]

NARRATIVE: CASE EVENT DATE: 20150907
